FAERS Safety Report 8880342 (Version 2)
Quarter: 2012Q4

REPORT INFORMATION
  Report Type: 
  Country: CZ (occurrence: CZ)
  Receive Date: 20121101
  Receipt Date: 20121101
  Transmission Date: 20130627
  Serious: Yes (Hospitalization)
  Sender: FDA-Public Use
  Company Number: CZ-PFIZER INC-2012264830

PATIENT
  Age: 7 None
  Sex: Female

DRUGS (2)
  1. SUNITINIB MALATE [Suspect]
     Indication: METASTATIC RENAL CELL CARCINOMA
     Dosage: 50mg daily, in cycles
     Route: 048
  2. ZOLEDRONATE [Concomitant]
     Indication: METASTASES TO BONE
     Dosage: 4 mg, once in 4 weeks

REACTIONS (4)
  - Haematuria [Recovered/Resolved]
  - Oesophagitis [Recovered/Resolved]
  - Dyspepsia [Recovered/Resolved]
  - Fatigue [Recovered/Resolved]
